FAERS Safety Report 14350714 (Version 1)
Quarter: 2018Q1

REPORT INFORMATION
  Report Type: Spontaneous
  Country: US (occurrence: US)
  Receive Date: 20180104
  Receipt Date: 20180104
  Transmission Date: 20180509
  Serious: No
  Sender: FDA-Public Use
  Company Number: US-DRREDDYS-USA/USA/17/0086594

PATIENT
  Sex: Female

DRUGS (2)
  1. HABITROL [Suspect]
     Active Substance: NICOTINE
     Indication: SMOKING CESSATION THERAPY
     Dosage: 1 YEAR AGO
     Route: 061
  2. HABITROL [Suspect]
     Active Substance: NICOTINE
     Route: 065
     Dates: start: 20170118

REACTIONS (1)
  - Treatment noncompliance [Unknown]
